FAERS Safety Report 8712507 (Version 2)
Quarter: 2013Q1

REPORT INFORMATION
  Report Type: Spontaneous
  Country: AR (occurrence: AR)
  Receive Date: 20120808
  Receipt Date: 20130313
  Transmission Date: 20140127
  Serious: Yes (Other)
  Sender: FDA-Public Use
  Company Number: PHHY2012AR068066

PATIENT
  Age: 66 Year
  Sex: Female

DRUGS (1)
  1. DIOVAN [Suspect]
     Indication: HYPERTENSION
     Dosage: 1 DF(160 MG VALS) DAILY

REACTIONS (4)
  - Arrhythmia [Recovering/Resolving]
  - Memory impairment [Unknown]
  - Nausea [Recovering/Resolving]
  - Dizziness [Recovering/Resolving]
